FAERS Safety Report 23603202 (Version 2)
Quarter: 2024Q1

REPORT INFORMATION
  Report Type: Spontaneous
  Country: US (occurrence: US)
  Receive Date: 20240307
  Receipt Date: 20240327
  Transmission Date: 20240410
  Serious: No
  Sender: FDA-Public Use
  Company Number: US-BRISTOL-MYERS SQUIBB COMPANY-2024-034191

PATIENT
  Age: 75 Year
  Sex: Male
  Weight: 87.09 kg

DRUGS (1)
  1. REVLIMID [Suspect]
     Active Substance: LENALIDOMIDE
     Indication: Plasma cell myeloma
     Route: 048
     Dates: start: 20240201

REACTIONS (5)
  - Therapy interrupted [Unknown]
  - Product supply issue [Unknown]
  - Off label use [Unknown]
  - Asthenia [Recovering/Resolving]
  - Platelet count decreased [Recovering/Resolving]
